FAERS Safety Report 7592084-7 (Version None)
Quarter: 2011Q3

REPORT INFORMATION
  Report Type: 
  Country: None (occurrence: None)
  Receive Date: 20110706
  Receipt Date: 20110621
  Transmission Date: 20111222
  Serious: Yes (Disabling)
  Sender: FDA-Public Use
  Company Number: GB-SANOFI-AVENTIS-2011SA036757

PATIENT
  Sex: Female

DRUGS (3)
  1. LITHIUM CARBONATE [Suspect]
     Indication: MANIA
     Route: 048
  2. LITHIUM CARBONATE [Suspect]
     Indication: DEPRESSION
     Route: 048
  3. PLAQUENIL [Suspect]
     Indication: ARTHRITIS
     Route: 065

REACTIONS (4)
  - DRUG INEFFECTIVE [None]
  - WEIGHT INCREASED [None]
  - DIZZINESS [None]
  - DEPRESSION [None]
